FAERS Safety Report 6539301-X (Version None)
Quarter: 2010Q1

REPORT INFORMATION
  Report Type: 
  Country: None (occurrence: None)
  Receive Date: 20100115
  Receipt Date: 20100112
  Transmission Date: 20100710
  Serious: Yes (Disabling, Other)
  Sender: FDA-Public Use
  Company Number: CY-JNJFOC-20100103832

PATIENT
  Age: 63 Year
  Sex: Male

DRUGS (2)
  1. TAVANIC [Suspect]
     Indication: BRONCHITIS
     Route: 048
     Dates: start: 20090201, end: 20090201
  2. AVELOX [Suspect]
     Indication: BRONCHITIS
     Route: 048
     Dates: start: 20090201, end: 20090201

REACTIONS (13)
  - ABASIA [None]
  - ASTHENIA [None]
  - DECREASED APPETITE [None]
  - DIZZINESS [None]
  - HYPOTONIA [None]
  - INITIAL INSOMNIA [None]
  - PAIN [None]
  - SEDATION [None]
  - SOMNOLENCE [None]
  - TENDON PAIN [None]
  - TENSION [None]
  - VOMITING [None]
  - WEIGHT DECREASED [None]
